FAERS Safety Report 9828363 (Version 1)
Quarter: 2014Q1

REPORT INFORMATION
  Report Type: Spontaneous
  Country: FR (occurrence: FR)
  Receive Date: 20140117
  Receipt Date: 20140117
  Transmission Date: 20141002
  Serious: Yes (Hospitalization)
  Sender: FDA-Public Use
  Company Number: FR-GLAXOSMITHKLINE-B0958094A

PATIENT
  Age: 52 Year
  Sex: Male

DRUGS (4)
  1. ARIXTRA [Suspect]
     Indication: THROMBOSIS PROPHYLAXIS
     Route: 058
     Dates: start: 201309, end: 20131121
  2. PYOSTACINE [Suspect]
     Indication: DERMO-HYPODERMITIS
     Dosage: 4TAB PER DAY
     Route: 048
     Dates: start: 20131120, end: 20131120
  3. PREVISCAN (FLUINDIONE) [Concomitant]
     Indication: THROMBOSIS PROPHYLAXIS
     Dates: end: 201309
  4. ANTIBIOTIC [Concomitant]
     Indication: DERMO-HYPODERMITIS
     Dates: start: 201309

REACTIONS (4)
  - Erythema [Recovered/Resolved]
  - Purpura [Recovered/Resolved]
  - Systemic inflammatory response syndrome [Recovered/Resolved]
  - Off label use [Unknown]
